FAERS Safety Report 8956042 (Version 1)
Quarter: 2012Q4

REPORT INFORMATION
  Report Type: 
  Country: PL (occurrence: PL)
  Receive Date: 20121210
  Receipt Date: 20121210
  Transmission Date: 20130627
  Serious: Yes (Death)
  Sender: FDA-Public Use
  Company Number: PL-BAXTER-2012BAX025997

PATIENT
  Age: 78 Year
  Sex: Male

DRUGS (2)
  1. DIANEAL PD4 (GLUKOZA 1,36%) ZESTAW DO DIALIZY OTRZEWNOWEJ [Suspect]
     Indication: AUTOMATED PERITONEAL DIALYSIS
     Route: 033
  2. DIANEAL PD4 GLUCOSE 2,27 % W/V [Suspect]
     Route: 033

REACTIONS (2)
  - Death [Fatal]
  - Disease complication [None]
